FAERS Safety Report 22331600 (Version 1)
Quarter: 2023Q2

REPORT INFORMATION
  Report Type: Spontaneous
  Country: US (occurrence: US)
  Receive Date: 20230517
  Receipt Date: 20230517
  Transmission Date: 20230722
  Serious: Yes (Death, Hospitalization, Other)
  Sender: FDA-Public Use
  Company Number: US-AMGEN-USASP2023082375

PATIENT
  Age: 86 Year
  Sex: Female

DRUGS (6)
  1. TRASTUZUMAB [Suspect]
     Active Substance: TRASTUZUMAB
     Indication: Breast cancer
     Dosage: UNK
     Route: 065
  2. ROMIPLOSTIM [Suspect]
     Active Substance: ROMIPLOSTIM
     Indication: Breast cancer
     Dosage: UNK
     Route: 065
  3. VINORELBINE [Concomitant]
     Active Substance: VINORELBINE TARTRATE
     Indication: Breast cancer
  4. CISPLATIN [Concomitant]
     Active Substance: CISPLATIN
     Indication: Breast cancer
  5. PERTUZUMAB [Concomitant]
     Active Substance: PERTUZUMAB
     Indication: Breast cancer
  6. PACLITAXEL [Concomitant]
     Active Substance: PACLITAXEL

REACTIONS (6)
  - Death [Fatal]
  - Coronary artery stenosis [Unknown]
  - Cachexia [Unknown]
  - Stress cardiomyopathy [Recovered/Resolved]
  - Off label use [Unknown]
  - Fatigue [Unknown]
